FAERS Safety Report 20689876 (Version 1)
Quarter: 2022Q2

REPORT INFORMATION
  Report Type: Spontaneous
  Country: US (occurrence: US)
  Receive Date: 20220408
  Receipt Date: 20220408
  Transmission Date: 20220720
  Serious: Yes (Hospitalization)
  Sender: FDA-Public Use
  Company Number: US-BRISTOL-MYERS SQUIBB COMPANY-2022-013786

PATIENT
  Age: 71 Year
  Sex: Male

DRUGS (1)
  1. REVLIMID [Suspect]
     Active Substance: LENALIDOMIDE
     Indication: Plasma cell myeloma
     Dosage: DOSE : UNAVAILABLE;     FREQ : TAKEN EVERY 28 DAYS WITH 21 DAYS ON AND 7 DAYS OFF
     Route: 065

REACTIONS (4)
  - Skin lesion [Unknown]
  - Bone disorder [Unknown]
  - Pain [Unknown]
  - Oral infection [Unknown]
